FAERS Safety Report 5536900-9 (Version None)
Quarter: 2007Q4

REPORT INFORMATION
  Report Type: 
  Country: None (occurrence: None)
  Receive Date: 20071207
  Receipt Date: 20071127
  Transmission Date: 20080405
  Serious: Yes (Life-Threatening, Hospitalization)
  Sender: FDA-Public Use
  Company Number: US-NOVOPROD-263599

PATIENT
  Age: 46 Year
  Sex: Male

DRUGS (1)
  1. NOVOLOG [Suspect]
     Indication: TYPE 1 DIABETES MELLITUS
     Dosage: UNKNOWN
     Route: 058

REACTIONS (2)
  - CONVULSION [None]
  - DIABETIC KETOACIDOSIS [None]
